FAERS Safety Report 5087611-8 (Version None)
Quarter: 2006Q3

REPORT INFORMATION
  Report Type: 
  Country: None (occurrence: None)
  Receive Date: 20060821
  Receipt Date: 20060809
  Transmission Date: 20061208
  Serious: Yes (Death, Hospitalization)
  Sender: FDA-Public Use
  Company Number: 2006097056

PATIENT
  Age: 18 Year
  Sex: Female

DRUGS (1)
  1. CELEBREX [Suspect]
     Indication: BACK PAIN
     Dosage: 200 MG
     Dates: start: 20060720

REACTIONS (4)
  - EMBOLISM [None]
  - RESPIRATORY ARREST [None]
  - RESPIRATORY DISORDER [None]
  - RESPIRATORY DISTRESS [None]
